FAERS Safety Report 9133412 (Version 2)
Quarter: 2013Q2

REPORT INFORMATION
  Report Type: Spontaneous
  Country: US (occurrence: US)
  Receive Date: 20130301
  Receipt Date: 20130412
  Transmission Date: 20140414
  Serious: No
  Sender: FDA-Public Use
  Company Number: US-PFIZER INC-2013071901

PATIENT
  Age: 55 Year
  Sex: Female
  Weight: 65.31 kg

DRUGS (6)
  1. ESTRING [Suspect]
     Indication: HORMONE THERAPY
     Dosage: UNK
     Route: 067
  2. SURFAK STOOL SOFTENER [Concomitant]
     Indication: FAECES HARD
     Dosage: UNK
  3. KLONOPIN [Concomitant]
     Dosage: UNK
  4. SOMA [Concomitant]
     Dosage: UNK
  5. RESTASIS [Concomitant]
     Dosage: UNK
  6. LACTULOSE [Concomitant]
     Dosage: UNK

REACTIONS (2)
  - Vulvovaginal mycotic infection [Not Recovered/Not Resolved]
  - Vulvovaginal pruritus [Not Recovered/Not Resolved]
